FAERS Safety Report 6837137-3 (Version None)
Quarter: 2010Q3

REPORT INFORMATION
  Report Type: 
  Country: None (occurrence: None)
  Receive Date: 20100713
  Receipt Date: 20070507
  Transmission Date: 20110219
  Serious: No
  Sender: FDA-Public Use
  Company Number: US-PFIZER INC-2007037942

PATIENT
  Sex: Female
  Weight: 59.09 kg

DRUGS (8)
  1. CHANTIX [Suspect]
     Indication: SMOKING CESSATION THERAPY
     Dates: start: 20070401, end: 20070504
  2. ALPRAZOLAM [Concomitant]
     Indication: ANXIETY DISORDER
  3. ADVAIR DISKUS 100/50 [Concomitant]
  4. FLONASE [Concomitant]
  5. FEXOFENADINE [Concomitant]
  6. VICODIN [Concomitant]
  7. MIRALAX [Concomitant]
  8. FIBERCON [Concomitant]

REACTIONS (5)
  - ARTHRALGIA [None]
  - CONSTIPATION [None]
  - FIBROMYALGIA [None]
  - NAUSEA [None]
  - SOMNOLENCE [None]
